FAERS Safety Report 8759712 (Version 1)
Quarter: 2012Q4

REPORT INFORMATION
  Report Type: 
  Country: CN (occurrence: CN)
  Receive Date: 20120829
  Receipt Date: 20120829
  Transmission Date: 20130627
  Serious: Yes (Other)
  Sender: FDA-Public Use
  Company Number: CN-ROCHE-1103578

PATIENT
  Age: 20 Year
  Sex: Male
  Weight: 82 kg

DRUGS (2)
  1. ROCEPHIN [Suspect]
     Indication: LUNG INFECTION
     Route: 041
     Dates: start: 20100323, end: 20100329
  2. ROCEPHIN [Suspect]
     Route: 041
     Dates: start: 20100401, end: 20100409

REACTIONS (1)
  - Drug-induced liver injury [Recovering/Resolving]
